FAERS Safety Report 5664957-3 (Version None)
Quarter: 2008Q1

REPORT INFORMATION
  Report Type: 
  Country: None (occurrence: None)
  Receive Date: 20080314
  Receipt Date: 20080304
  Transmission Date: 20080703
  Serious: Yes (Other)
  Sender: FDA-Public Use
  Company Number: US-PFIZER INC-2008012858

PATIENT
  Sex: Male

DRUGS (5)
  1. CHANTIX [Suspect]
     Indication: SMOKING CESSATION THERAPY
     Dosage: FREQ:BID: DAILY
     Route: 048
     Dates: start: 20071101, end: 20080201
  2. NICOTINE [Suspect]
  3. SEROQUEL [Concomitant]
  4. GEODON [Concomitant]
  5. COMMIT [Concomitant]

REACTIONS (11)
  - ABDOMINAL DISCOMFORT [None]
  - ABDOMINAL PAIN UPPER [None]
  - BACK PAIN [None]
  - CONSTIPATION [None]
  - DEMENTIA [None]
  - DIARRHOEA [None]
  - FEELING ABNORMAL [None]
  - HEART RATE IRREGULAR [None]
  - MALAISE [None]
  - MEMORY IMPAIRMENT [None]
  - SMOKER [None]
